FAERS Safety Report 23574888 (Version 7)
Quarter: 2025Q3

REPORT INFORMATION
  Report Type: Report from Study
  Country: MX (occurrence: MX)
  Receive Date: 20240228
  Receipt Date: 20250714
  Transmission Date: 20251020
  Serious: Yes (Hospitalization, Disabling)
  Sender: NOVARTIS
  Company Number: MX-002147023-NVSC2024MX041481

PATIENT
  Age: 56 Year
  Sex: Female
  Weight: 96 kg

DRUGS (19)
  1. TASIGNA [Suspect]
     Active Substance: NILOTINIB
     Indication: Chronic myeloid leukaemia
     Dosage: 2 DOSAGE FORM, Q12H
     Route: 048
     Dates: start: 2017, end: 201803
  2. TASIGNA [Suspect]
     Active Substance: NILOTINIB
     Route: 048
     Dates: start: 201803
  3. TASIGNA [Suspect]
     Active Substance: NILOTINIB
     Dosage: 1 DOSAGE FORM, BID
     Route: 048
     Dates: start: 2018, end: 20241230
  4. TASIGNA [Suspect]
     Active Substance: NILOTINIB
     Route: 048
     Dates: start: 2022
  5. TASIGNA [Suspect]
     Active Substance: NILOTINIB
     Dosage: 800 MG BID, (4 OF 200 MG) IN THE MORNING AND AT NIGHT
     Route: 048
  6. TASIGNA [Suspect]
     Active Substance: NILOTINIB
     Dosage: 400 MG, BID (2 OF 200 MG) IN THE MORNING AND AT NIGHT
     Route: 048
  7. TASIGNA [Suspect]
     Active Substance: NILOTINIB
     Dosage: 1 DOSAGE FORM, BID (1 OF  200 MG) (TWICE A DAY / IN THE  MORNING AND  AT NIGHT)
     Route: 048
     Dates: end: 20240925
  8. TASIGNA [Suspect]
     Active Substance: NILOTINIB
     Dosage: 1 DOSAGE FORM, BID (1 OF  200 MG) (TWICE A DAY / IN THE  MORNING AND  AT NIGHT)
     Route: 048
     Dates: start: 20241012
  9. TASIGNA [Suspect]
     Active Substance: NILOTINIB
     Dosage: 2 DOSAGE FORM (200 MG), QD
     Route: 065
  10. TASIGNA [Suspect]
     Active Substance: NILOTINIB
     Dosage: 3 DOSAGE FORM, QD
     Route: 048
     Dates: start: 20241230
  11. IMATINIB [Suspect]
     Active Substance: IMATINIB
     Indication: Chronic myeloid leukaemia
     Dosage: 1 DOSAGE FORM, Q12H
     Route: 048
     Dates: start: 2008, end: 2017
  12. IMATINIB [Suspect]
     Active Substance: IMATINIB
     Dosage: 2 DOSAGE FORM, BID (MORNING AND NIGHT)
     Route: 065
     Dates: start: 2018
  13. IMATINIB [Suspect]
     Active Substance: IMATINIB
     Dosage: 1 DOSAGE FORM, BID (MORNING AND NIGHT)
     Route: 065
  14. METFORMIN HYDROCHLORIDE [Concomitant]
     Active Substance: METFORMIN HYDROCHLORIDE
     Indication: Diabetes mellitus
     Dosage: 1 DOSAGE FORM, Q12H (STOPPED 6 YEARS AGO)
     Route: 048
     Dates: start: 2002
  15. INSULIN NOS [Concomitant]
     Active Substance: INSULIN NOS
     Indication: Diabetes mellitus
     Route: 058
  16. INSULIN NOS [Concomitant]
     Active Substance: INSULIN NOS
     Dosage: 1 DOSAGE FORM (20 UNITS), BID
     Route: 065
     Dates: start: 2006
  17. DAPAGLIFLOZIN [Concomitant]
     Active Substance: DAPAGLIFLOZIN
     Indication: Diabetes mellitus
     Route: 048
     Dates: start: 2022
  18. CARBAMAZEPINE [Concomitant]
     Active Substance: CARBAMAZEPINE
     Indication: Diabetic neuropathy
     Dosage: 1 DOSAGE FORM, QD (STARTED SEVERAL YEARS AGO)
     Route: 048
     Dates: start: 2022
  19. Trib [Concomitant]
     Indication: Chronic myeloid leukaemia
     Dosage: 1 DOSAGE FORM, QD
     Route: 048
     Dates: start: 2008

REACTIONS (9)
  - Visual impairment [Unknown]
  - Foot fracture [Unknown]
  - Foot fracture [Recovered/Resolved]
  - Limb injury [Recovered/Resolved]
  - Anaemia [Not Recovered/Not Resolved]
  - Off label use [Not Recovered/Not Resolved]
  - Blood cholesterol increased [Not Recovered/Not Resolved]
  - Hypertension [Not Recovered/Not Resolved]
  - Blood glucose decreased [Not Recovered/Not Resolved]

NARRATIVE: CASE EVENT DATE: 20180301
